FAERS Safety Report 8852425 (Version 1)
Quarter: 2012Q4

REPORT INFORMATION
  Report Type: 
  Country: JP (occurrence: JP)
  Receive Date: 20121022
  Receipt Date: 20121022
  Transmission Date: 20130627
  Serious: Yes (Other)
  Sender: FDA-Public Use
  Company Number: JP-ELI_LILLY_AND_COMPANY-JP201210003231

PATIENT
  Age: 82 Year
  Sex: Male

DRUGS (1)
  1. GEMZAR [Suspect]
     Dosage: UNK, other
     Route: 042

REACTIONS (1)
  - Blood potassium increased [Unknown]
